FAERS Safety Report 15330099 (Version 1)
Quarter: 2018Q3

REPORT INFORMATION
  Report Type: Spontaneous
  Country: US (occurrence: US)
  Receive Date: 20180824
  Receipt Date: 20180824
  Transmission Date: 20181010
  Serious: No
  Sender: FDA-Public Use
  Company Number: None

PATIENT
  Age: 30 Year
  Sex: Female

DRUGS (1)
  1. MAKENA [Suspect]
     Active Substance: HYDROXYPROGESTERONE CAPROATE

REACTIONS (4)
  - Injection site swelling [None]
  - Musculoskeletal disorder [None]
  - Injection site pain [None]
  - Pain in extremity [None]

NARRATIVE: CASE EVENT DATE: 20180810
